FAERS Safety Report 7637251-9 (Version None)
Quarter: 2011Q3

REPORT INFORMATION
  Report Type: 
  Country: None (occurrence: None)
  Receive Date: 20110726
  Receipt Date: 20110720
  Transmission Date: 20111222
  Serious: Yes (Hospitalization)
  Sender: FDA-Public Use
  Company Number: US-ASTRAZENECA-2011SE43515

PATIENT
  Age: 77 Year
  Sex: Female

DRUGS (3)
  1. ANTI DIARRHEA PILLS [Suspect]
     Route: 065
  2. BLOOD PRESSURE MEDICINE [Concomitant]
  3. ARIMIDEX [Suspect]
     Route: 048

REACTIONS (1)
  - GASTROINTESTINAL HAEMORRHAGE [None]
